FAERS Safety Report 6656107-1 (Version None)
Quarter: 2010Q1

REPORT INFORMATION
  Report Type: 
  Country: None (occurrence: None)
  Receive Date: 20100329
  Receipt Date: 20100322
  Transmission Date: 20100710
  Serious: Yes (Other)
  Sender: FDA-Public Use
  Company Number: B0641859A

PATIENT
  Sex: Male

DRUGS (8)
  1. RANITIDINE [Suspect]
  2. MOTILIUM [Suspect]
  3. NEXIUM [Suspect]
  4. BISOPROLOL [Suspect]
  5. COLOFAC [Suspect]
     Indication: IRRITABLE BOWEL SYNDROME
  6. DOXAZOSIN MESYLATE [Suspect]
  7. EDRONAX [Suspect]
     Indication: DEPRESSION
     Dates: start: 20100223
  8. BENDROFLUMETHIAZIDE [Suspect]

REACTIONS (3)
  - DRUG INTERACTION [None]
  - FATIGUE [None]
  - SEDATION [None]
